FAERS Safety Report 15122458 (Version 1)
Quarter: 2018Q3

REPORT INFORMATION
  Report Type: Spontaneous
  Country: US (occurrence: US)
  Receive Date: 20180613
  Receipt Date: 20180613
  Transmission Date: 20181010
  Serious: Yes (Hospitalization)
  Sender: FDA-Public Use
  Company Number: None

PATIENT
  Sex: Male
  Weight: 64.3 kg

DRUGS (4)
  1. PANTOPRAZOLE [Concomitant]
     Active Substance: PANTOPRAZOLE
  2. NEXAVAR [Suspect]
     Active Substance: SORAFENIB
     Dates: end: 20160309
  3. BISOPROLOL [Concomitant]
     Active Substance: BISOPROLOL
  4. LAMIVUDINE. [Concomitant]
     Active Substance: LAMIVUDINE

REACTIONS (6)
  - Atrial fibrillation [None]
  - Alanine aminotransferase increased [None]
  - Cough [None]
  - Fatigue [None]
  - Aspartate aminotransferase increased [None]
  - Pulmonary embolism [None]

NARRATIVE: CASE EVENT DATE: 20160404
